FAERS Safety Report 23542575 (Version 1)
Quarter: 2024Q1

REPORT INFORMATION
  Report Type: Spontaneous
  Country: HU (occurrence: HU)
  Receive Date: 20240220
  Receipt Date: 20240220
  Transmission Date: 20240410
  Serious: Yes (Hospitalization)
  Sender: FDA-Public Use
  Company Number: HU-ACRAF SpA-2024-033415

PATIENT
  Age: 20 Year
  Sex: Female

DRUGS (7)
  1. RISPERDAL [Interacting]
     Active Substance: RISPERIDONE
     Indication: Cognitive disorder
     Route: 065
  2. LITHIUM CARBONATE [Interacting]
     Active Substance: LITHIUM CARBONATE
     Indication: Product used for unknown indication
     Route: 048
  3. CENOBAMATE [Interacting]
     Active Substance: CENOBAMATE
     Indication: Product used for unknown indication
     Route: 048
  4. CENOBAMATE [Interacting]
     Active Substance: CENOBAMATE
     Route: 048
  5. CENOBAMATE [Interacting]
     Active Substance: CENOBAMATE
     Route: 048
  6. CENOBAMATE [Interacting]
     Active Substance: CENOBAMATE
     Route: 048
  7. CLOBAZAM [Interacting]
     Active Substance: CLOBAZAM
     Indication: Epilepsy
     Dosage: 2X1 TABLETS
     Route: 065

REACTIONS (4)
  - Aggression [Not Recovered/Not Resolved]
  - Drug interaction [Not Recovered/Not Resolved]
  - Somnolence [Not Recovered/Not Resolved]
  - Feeding disorder [Not Recovered/Not Resolved]

NARRATIVE: CASE EVENT DATE: 20231212
